FAERS Safety Report 17465127 (Version 2)
Quarter: 2020Q1

REPORT INFORMATION
  Report Type: Spontaneous
  Country: US (occurrence: US)
  Receive Date: 20200226
  Receipt Date: 20200310
  Transmission Date: 20200409
  Serious: No
  Sender: FDA-Public Use
  Company Number: US-ASTRAZENECA-2020SE26774

PATIENT
  Age: 364 Day
  Sex: Male

DRUGS (1)
  1. SYNAGIS [Suspect]
     Active Substance: PALIVIZUMAB
     Route: 030
     Dates: start: 20200211

REACTIONS (2)
  - Treatment noncompliance [Unknown]
  - Influenza [Unknown]

NARRATIVE: CASE EVENT DATE: 20200211
